FAERS Safety Report 4370380-4 (Version None)
Quarter: 2004Q2

REPORT INFORMATION
  Report Type: 
  Country: None (occurrence: None)
  Receive Date: 20040603
  Receipt Date: 20040224
  Transmission Date: 20050107
  Serious: Yes (Other)
  Sender: FDA-Public Use
  Company Number: US-BRISTOL-MYERS SQUIBB COMPANY-12515797

PATIENT
  Age: 22 Year
  Sex: Male

DRUGS (5)
  1. ABILIFY [Suspect]
     Indication: SCHIZOPHRENIA
     Dosage: 15 MG/DAY INITIATED MARCH 2003; INCR TO 30 MG SOON THEREAFTER. DISCONT. BY PT.
     Route: 048
     Dates: start: 20030327
  2. SEROQUEL [Suspect]
     Dosage: INIT 50 MG/DAY JUNE 2003;100 MG/DAY(NO DATE PROV)NOTE:26-JUN-03 ADDED UP TO 200 MG/DAY
     Dates: start: 20030601
  3. MIRTAZAPINE [Concomitant]
  4. CLONAZEPAM [Concomitant]
  5. HALOPERIDOL [Concomitant]

REACTIONS (1)
  - DIABETES MELLITUS [None]
